FAERS Safety Report 5628360-4 (Version None)
Quarter: 2008Q1

REPORT INFORMATION
  Report Type: 
  Country: None (occurrence: None)
  Receive Date: 20080215
  Receipt Date: 20080207
  Transmission Date: 20080703
  Serious: Yes (Hospitalization)
  Sender: FDA-Public Use
  Company Number: BW-ABBOTT-08P-019-0434237-00

PATIENT
  Age: 36 Year
  Sex: Female

DRUGS (3)
  1. KALETRA [Suspect]
     Indication: PROPHYLAXIS AGAINST HIV INFECTION
     Route: 048
     Dates: start: 20071011, end: 20080104
  2. LAMIVUDINE + ZIDOVUDINE [Concomitant]
     Indication: PROPHYLAXIS AGAINST HIV INFECTION
     Route: 048
     Dates: start: 20071011, end: 20080104
  3. METHYLDOPA [Concomitant]
     Indication: PREGNANCY INDUCED HYPERTENSION
     Dates: start: 20071001

REACTIONS (2)
  - INTRA-UTERINE DEATH [None]
  - PREGNANCY INDUCED HYPERTENSION [None]
